FAERS Safety Report 13977680 (Version 1)
Quarter: 2017Q3

REPORT INFORMATION
  Report Type: Spontaneous
  Country: GB (occurrence: GB)
  Receive Date: 20170915
  Receipt Date: 20170915
  Transmission Date: 20171128
  Serious: Yes (Hospitalization)
  Sender: FDA-Public Use
  Company Number: GB-ACCORD-058486

PATIENT
  Age: 83 Year
  Sex: Female

DRUGS (3)
  1. DIOVAN [Suspect]
     Active Substance: VALSARTAN
     Indication: CARDIAC FAILURE
     Dosage: CODE NOT BROKEN
     Route: 048
     Dates: start: 20151116
  2. SPIRONOLACTONE. [Concomitant]
     Active Substance: SPIRONOLACTONE
     Indication: CARDIAC FAILURE
     Dosage: 25 MG, QD
     Route: 048
     Dates: start: 20161201, end: 20170704
  3. RAMIPRIL. [Suspect]
     Active Substance: RAMIPRIL
     Indication: CARDIAC FAILURE
     Dosage: ON 04-JUL-2017, RECEIVED THE MOST RECENT DOSE OF RAMIPRIL
     Route: 048
     Dates: start: 20170418

REACTIONS (2)
  - Fall [Recovered/Resolved]
  - Brain stem stroke [Recovered/Resolved]

NARRATIVE: CASE EVENT DATE: 20170705
